FAERS Safety Report 6687644-1 (Version None)
Quarter: 2010Q2

REPORT INFORMATION
  Report Type: 
  Country: None (occurrence: None)
  Receive Date: 20100415
  Receipt Date: 20100405
  Transmission Date: 20101027
  Serious: Yes (Hospitalization)
  Sender: FDA-Public Use
  Company Number: 557363

PATIENT

DRUGS (1)
  1. PROPOFOL [Suspect]
     Indication: ANAESTHESIA PROCEDURE
     Dosage: INTRAVENOUS
     Route: 042

REACTIONS (10)
  - HYPOTENSION [None]
  - KLEBSIELLA INFECTION [None]
  - LEUKOPENIA [None]
  - MULTI-ORGAN FAILURE [None]
  - POST PROCEDURAL HAEMORRHAGE [None]
  - POST PROCEDURAL SEPSIS [None]
  - PRODUCT CONTAMINATION MICROBIAL [None]
  - SERRATIA INFECTION [None]
  - SURGICAL PROCEDURE REPEATED [None]
  - THROMBOCYTOPENIA [None]
